FAERS Safety Report 19198621 (Version 1)
Quarter: 2021Q2

REPORT INFORMATION
  Report Type: Spontaneous
  Country: FR (occurrence: FR)
  Receive Date: 20210429
  Receipt Date: 20210429
  Transmission Date: 20210717
  Serious: Yes (Life-Threatening, Other)
  Sender: FDA-Public Use
  Company Number: FR-GILEAD-2021-0527271

PATIENT
  Age: 68 Year
  Sex: Male

DRUGS (13)
  1. PYRIMETHAMINE [Concomitant]
     Active Substance: PYRIMETHAMINE
  2. SERTRALINE [SERTRALINE HYDROCHLORIDE] [Concomitant]
     Active Substance: SERTRALINE HYDROCHLORIDE
  3. ETOPOSIDE. [Concomitant]
     Active Substance: ETOPOSIDE
  4. LEVETIRACETAM. [Concomitant]
     Active Substance: LEVETIRACETAM
  5. AMIKACINE [AMIKACIN] [Concomitant]
     Active Substance: AMIKACIN
  6. TAZOCIN [Concomitant]
     Active Substance: PIPERACILLIN SODIUM\TAZOBACTAM SODIUM
  7. VANCOMYCINE [VANCOMYCIN] [Concomitant]
     Active Substance: VANCOMYCIN
  8. RITUXIMAB. [Concomitant]
     Active Substance: RITUXIMAB
  9. HOLOXAN [Suspect]
     Active Substance: IFOSFAMIDE
     Indication: PRODUCT USED FOR UNKNOWN INDICATION
     Dosage: 1 DOSAGE FORM, ONCE
     Route: 041
     Dates: start: 20210302, end: 20210302
  10. CARBOPLATINE [Concomitant]
     Active Substance: CARBOPLATIN
  11. SULFADIAZINE. [Concomitant]
     Active Substance: SULFADIAZINE
  12. LEDERFOLINE [Concomitant]
     Active Substance: LEUCOVORIN CALCIUM
  13. BIKTARVY [Suspect]
     Active Substance: BICTEGRAVIR SODIUM\EMTRICITABINE\TENOFOVIR ALAFENAMIDE FUMARATE
     Indication: ACQUIRED IMMUNODEFICIENCY SYNDROME
     Dosage: 1 DOSAGE FORM, ONCE
     Route: 048

REACTIONS (2)
  - Nephrotic syndrome [Recovering/Resolving]
  - Fanconi syndrome acquired [Recovering/Resolving]

NARRATIVE: CASE EVENT DATE: 20210307
